FAERS Safety Report 5557416-X (Version None)
Quarter: 2007Q4

REPORT INFORMATION
  Report Type: 
  Country: None (occurrence: None)
  Receive Date: 20071214
  Receipt Date: 20071129
  Transmission Date: 20080405
  Serious: Yes (Hospitalization)
  Sender: FDA-Public Use
  Company Number: US-BAYER-200715034NA

PATIENT
  Age: 67 Year
  Sex: Male

DRUGS (5)
  1. DTIC-DOME [Suspect]
     Indication: MALIGNANT MELANOMA
     Route: 042
     Dates: start: 20070806, end: 20070917
  2. IPILIMUMAB OR PLACEBO [Suspect]
     Indication: MALIGNANT MELANOMA
     Route: 042
     Dates: start: 20070806, end: 20070917
  3. HUMULIN R [Concomitant]
     Dates: start: 20071008, end: 20071011
  4. ALLOPURINOL [Concomitant]
     Dates: start: 20070601
  5. PROSCAR [Concomitant]
     Dates: start: 20000202

REACTIONS (7)
  - ALANINE AMINOTRANSFERASE INCREASED [None]
  - ASPARTATE AMINOTRANSFERASE INCREASED [None]
  - AUTOIMMUNE HEPATITIS [None]
  - COLITIS [None]
  - LUNG NEOPLASM [None]
  - METASTASES TO SPLEEN [None]
  - PNEUMONITIS [None]
